FAERS Safety Report 5223446-0 (Version None)
Quarter: 2007Q1

REPORT INFORMATION
  Report Type: 
  Country: None (occurrence: None)
  Receive Date: 20070125
  Receipt Date: 20070123
  Transmission Date: 20070707
  Serious: Yes (Hospitalization)
  Sender: FDA-Public Use
  Company Number: 221411

PATIENT
  Age: 64 Year
  Sex: Female
  Weight: 67 kg

DRUGS (7)
  1. MABTHERA (RITUXIMAB) CONC FOR SOLUTION FOR INFUSION [Suspect]
     Indication: B-CELL LYMPHOMA
     Dosage: 640 MG, INTRAVENOUS
     Route: 042
     Dates: start: 20050824
  2. DOXORUBICIN HCL [Suspect]
     Indication: B-CELL LYMPHOMA
     Dosage: 86 MG, INTRAVENOUS
     Route: 042
     Dates: start: 20050824
  3. CYCLOPHOSPHAMIDE [Suspect]
     Indication: B-CELL LYMPHOMA
     Dosage: 1280 MG
     Dates: start: 20050824
  4. VINCRISTINE SULFATE [Suspect]
     Indication: B-CELL LYMPHOMA
     Dosage: 2 MG, INTRAVENOUS
     Route: 042
     Dates: start: 20050824
  5. PREDNISOLONE [Suspect]
     Indication: B-CELL LYMPHOMA
     Dosage: SEE IMAGE, ORAL
     Route: 048
     Dates: start: 20050824
  6. .. [Concomitant]
  7. NAVOBAN (TROPISETRON HYDRO [Concomitant]

REACTIONS (5)
  - BRONCHIAL OBSTRUCTION [None]
  - COUGH [None]
  - HEADACHE [None]
  - LUNG DISORDER [None]
  - PYREXIA [None]
